FAERS Safety Report 8421850-0 (Version None)
Quarter: 2012Q2

REPORT INFORMATION
  Report Type: 
  Country: None (occurrence: None)
  Receive Date: 20120601
  Receipt Date: 20120523
  Transmission Date: 20120825
  Serious: Yes (Other)
  Sender: FDA-Public Use
  Company Number: 2012MA006216

PATIENT
  Age: 72 Year
  Sex: Female

DRUGS (24)
  1. SIMVASTATIN [Concomitant]
  2. TIOTROPIUM BROMIDE [Concomitant]
  3. VALPROIC ACID [Concomitant]
  4. TRAMADOL HCL [Concomitant]
  5. BUMETANIDE [Concomitant]
  6. SOLIFENACIN SUCCINATE [Concomitant]
  7. MONONITRATE [Concomitant]
  8. LEVOTHYROXINE SODIUM [Concomitant]
  9. OMEPRAZOLE [Concomitant]
  10. NICORANDIL [Concomitant]
  11. MIRTAZAPINE [Concomitant]
  12. IBUPROFEN [Concomitant]
  13. RAMIPRIL [Concomitant]
  14. AMLODIPINE [Concomitant]
  15. INTRASITE GEL [Concomitant]
  16. DOXYCYCLINE HYCLATE [Suspect]
     Indication: URINARY TRACT INFECTION
     Dosage: 100 MG;   ; PO
     Route: 048
     Dates: start: 20120329, end: 20120330
  17. ACETAMINOPHEN [Concomitant]
  18. ATENOLOL [Concomitant]
  19. ZUCLOPENTHIXOL [Concomitant]
  20. ISOSORBIDE DINITRATE [Concomitant]
  21. LACRI-LUBE [Concomitant]
  22. PROCYCLIDINE HYDROCHLORIDE 2MG TAB [Concomitant]
  23. QUININE SULFATE [Concomitant]
  24. MOVIPREP [Concomitant]

REACTIONS (1)
  - SWELLING FACE [None]
